FAERS Safety Report 18058493 (Version 1)
Quarter: 2020Q3

REPORT INFORMATION
  Report Type: Spontaneous
  Country: US (occurrence: US)
  Receive Date: 20200722
  Receipt Date: 20200722
  Transmission Date: 20201103
  Serious: Yes (Other)
  Sender: FDA-Public Use
  Company Number: None

PATIENT
  Age: 59 Year
  Sex: Female
  Weight: 67 kg

DRUGS (12)
  1. ATORVASTATIN 10MG [Concomitant]
     Active Substance: ATORVASTATIN
     Dates: start: 20200710
  2. HALOPERIDOL 5MG TABLET [Concomitant]
     Dates: start: 20200712
  3. DIVALPROEX 500MG DR [Concomitant]
     Dates: start: 20200710
  4. DOCUSATE SODIUM 250MG [Concomitant]
     Active Substance: DOCUSATE SODIUM
     Dates: start: 20200710
  5. PANTOPRAZOLE 20MG TABLET [Concomitant]
     Dates: start: 20200712
  6. ACETAMINOPHEN 500MG TABLET [Concomitant]
     Dates: start: 20200713
  7. METOPROLOL 50MG IR [Concomitant]
     Dates: start: 20200715
  8. SENNA 8.6MG [Concomitant]
     Dates: start: 20200710
  9. ASPIRIN 81MG [Concomitant]
     Active Substance: ASPIRIN
     Dates: start: 20200712
  10. REMDESIVIR. [Suspect]
     Active Substance: REMDESIVIR
     Indication: COVID-19
     Route: 041
     Dates: start: 20200714, end: 20200718
  11. CIPROFLOXACIN. [Suspect]
     Active Substance: CIPROFLOXACIN
     Indication: URINARY TRACT INFECTION
     Route: 041
     Dates: start: 20200715, end: 20200716
  12. ENOXAPARIN 40MG SC [Concomitant]
     Dates: start: 20200714

REACTIONS (2)
  - Rash maculo-papular [None]
  - Rash macular [None]

NARRATIVE: CASE EVENT DATE: 20200715
